FAERS Safety Report 9321978 (Version 1)
Quarter: 2013Q2

REPORT INFORMATION
  Report Type: Spontaneous
  Country: US (occurrence: None)
  Receive Date: 20130530
  Receipt Date: 20130530
  Transmission Date: 20140414
  Serious: No
  Sender: FDA-Public Use
  Company Number: None

PATIENT
  Age: 30 Year
  Sex: Male
  Weight: 83 kg

DRUGS (2)
  1. ROPIVACIANE HCL [Suspect]
     Dosage: 1CC
     Route: 008
  2. DEXAMETHASONE [Suspect]
     Dosage: 1CC?
     Route: 008

REACTIONS (1)
  - Product deposit [None]
